FAERS Safety Report 9206548 (Version 1)
Quarter: 2013Q2

REPORT INFORMATION
  Report Type: Spontaneous
  Country: GB (occurrence: None)
  Receive Date: 20130401
  Receipt Date: 20130401
  Transmission Date: 20140414
  Serious: Yes (Other)
  Sender: FDA-Public Use
  Company Number: SYM-2013-02161

PATIENT
  Sex: Female

DRUGS (3)
  1. FLUOROURACIL [Suspect]
  2. OXALIPLATIN [Suspect]
  3. YTTRIUM [Suspect]

REACTIONS (1)
  - Venoocclusive disease [None]
